FAERS Safety Report 13277123 (Version 3)
Quarter: 2017Q1

REPORT INFORMATION
  Report Type: Report from Study
  Country: US (occurrence: US)
  Receive Date: 20170228
  Receipt Date: 20170317
  Transmission Date: 20170428
  Serious: Yes (Hospitalization)
  Sender: FDA-Public Use
  Company Number: US-PFIZER INC-2017079265

PATIENT
  Age: 44 Year
  Sex: Female
  Weight: 101 kg

DRUGS (12)
  1. TOPROL XL [Concomitant]
     Active Substance: METOPROLOL SUCCINATE
     Dosage: UNK
     Route: 048
     Dates: start: 20131105
  2. LIPITOR [Suspect]
     Active Substance: ATORVASTATIN CALCIUM
     Indication: HYPERLIPIDAEMIA
     Dosage: 40 MG, 1X/DAY
     Route: 048
     Dates: start: 20140210, end: 20170127
  3. LORCASERIN HYDROCHLORIDE (BLINDED) [Suspect]
     Active Substance: LORCASERIN HYDROCHLORIDE
     Dosage: UNK, 2X/DAY
     Route: 048
     Dates: start: 20150628, end: 20170126
  4. ASPIRIN /00002701/ [Concomitant]
     Active Substance: ASPIRIN
     Dosage: UNK
     Route: 048
     Dates: start: 20130404
  5. LIPITOR [Suspect]
     Active Substance: ATORVASTATIN CALCIUM
     Dosage: 40 MG, 1X/DAY (ONCE DAILY)
     Route: 048
     Dates: start: 20170131
  6. IBUPROFEN. [Concomitant]
     Active Substance: IBUPROFEN
     Dosage: UNK
     Route: 048
     Dates: start: 20140210
  7. LORCASERIN HYDROCHLORIDE (BLINDED) [Suspect]
     Active Substance: LORCASERIN HYDROCHLORIDE
     Dosage: UNK, 2X/DAY
     Route: 048
     Dates: start: 20150628, end: 20170126
  8. LORCASERIN HYDROCHLORIDE (BLINDED) [Suspect]
     Active Substance: LORCASERIN HYDROCHLORIDE
     Indication: WEIGHT CONTROL
     Dosage: UNK, 2X/DAY
     Route: 048
     Dates: start: 20140905, end: 20150624
  9. PLAVIX [Concomitant]
     Active Substance: CLOPIDOGREL BISULFATE
     Dosage: UNK
     Route: 048
     Dates: start: 20130404
  10. LORCASERIN HYDROCHLORIDE (BLINDED) [Suspect]
     Active Substance: LORCASERIN HYDROCHLORIDE
     Indication: WEIGHT CONTROL
     Dosage: UNK, 2X/DAY
     Route: 048
     Dates: start: 20140905, end: 20150624
  11. ZESTORETIC [Concomitant]
     Active Substance: HYDROCHLOROTHIAZIDE\LISINOPRIL
     Dosage: [HYDROCHLOROTHIAZIDE 10 MG]/ [LISINOPRIL 12.5 MG]
     Route: 048
     Dates: start: 20130604
  12. TRAMADOL. [Concomitant]
     Active Substance: TRAMADOL
     Dosage: UNK
     Route: 048
     Dates: start: 20140210

REACTIONS (2)
  - Angina pectoris [Recovered/Resolved]
  - Angina unstable [Recovered/Resolved]

NARRATIVE: CASE EVENT DATE: 20150625
